FAERS Safety Report 4821276-2 (Version None)
Quarter: 2005Q4

REPORT INFORMATION
  Report Type: 
  Country: None (occurrence: None)
  Receive Date: 20051107
  Receipt Date: 20051024
  Transmission Date: 20060501
  Serious: Yes (Hospitalization, Other)
  Sender: FDA-Public Use
  Company Number: PHFR2005GB03522

PATIENT
  Age: 69 Year
  Sex: Female

DRUGS (2)
  1. MELLERIL MEL+TAB [Suspect]
     Dosage: 25 MG, TID
     Route: 048
  2. MELLERIL MEL+TAB [Suspect]
     Dosage: 25 MG, QD

REACTIONS (3)
  - CATATONIA [None]
  - HYPOKINESIA [None]
  - PARALYSIS [None]
